FAERS Safety Report 9025200 (Version 1)
Quarter: 2013Q1

REPORT INFORMATION
  Report Type: Spontaneous
  Country: CA (occurrence: CA)
  Receive Date: 20130122
  Receipt Date: 20130122
  Transmission Date: 20140127
  Serious: Yes (Death)
  Sender: FDA-Public Use
  Company Number: CA-US-EMD SERONO, INC.-7188394

PATIENT
  Age: 34 Year
  Sex: Female

DRUGS (2)
  1. REBIF [Suspect]
     Indication: PRODUCT USED FOR UNKNOWN INDICATION
     Route: 058
  2. EFFEXOR XR [Suspect]
     Indication: PRODUCT USED FOR UNKNOWN INDICATION
     Route: 048

REACTIONS (7)
  - Pneumonia [Fatal]
  - Acute respiratory distress syndrome [Fatal]
  - Generalised oedema [Fatal]
  - Multiple sclerosis [Fatal]
  - Renal failure acute [Fatal]
  - Shock haemorrhagic [Fatal]
  - Thrombocytopenic purpura [Fatal]
